FAERS Safety Report 13386875 (Version 4)
Quarter: 2020Q1

REPORT INFORMATION
  Report Type: Report from Study
  Country: DE (occurrence: DE)
  Receive Date: 20170330
  Receipt Date: 20200212
  Transmission Date: 20200409
  Serious: Yes (Hospitalization)
  Sender: FDA-Public Use
  Company Number: DE-ROCHE-1913032

PATIENT
  Age: 46 Year
  Sex: Female

DRUGS (1)
  1. TOCILIZUMAB. [Suspect]
     Active Substance: TOCILIZUMAB
     Indication: RHEUMATOID ARTHRITIS
     Dosage: ROUTE: SUBCUTANEOUS
     Route: 042
     Dates: start: 20160623

REACTIONS (1)
  - Meniscal degeneration [Not Recovered/Not Resolved]

NARRATIVE: CASE EVENT DATE: 20160902
